FAERS Safety Report 15806329 (Version 1)
Quarter: 2019Q1

REPORT INFORMATION
  Report Type: Spontaneous
  Country: US (occurrence: US)
  Receive Date: 20190110
  Receipt Date: 20190110
  Transmission Date: 20190417
  Serious: No
  Sender: FDA-Public Use
  Company Number: US-PFIZER INC-2019012744

PATIENT
  Age: 48 Year
  Sex: Male

DRUGS (4)
  1. ALEVE [Suspect]
     Active Substance: NAPROXEN SODIUM
     Dosage: UNK
  2. ASPARTAME [Suspect]
     Active Substance: ASPARTAME
     Dosage: UNK
  3. ADVIL [Suspect]
     Active Substance: IBUPROFEN
     Dosage: UNK
  4. PRILOSEC [Suspect]
     Active Substance: OMEPRAZOLE MAGNESIUM
     Dosage: UNK

REACTIONS (1)
  - Drug hypersensitivity [Unknown]
